FAERS Safety Report 21466020 (Version 8)
Quarter: 2023Q4

REPORT INFORMATION
  Report Type: Spontaneous
  Country: US (occurrence: US)
  Receive Date: 20221017
  Receipt Date: 20231023
  Transmission Date: 20240110
  Serious: No
  Sender: FDA-Public Use
  Company Number: US-PFIZER INC-2019526927

PATIENT
  Age: 62 Year
  Sex: Female

DRUGS (2)
  1. XELJANZ [Suspect]
     Active Substance: TOFACITINIB CITRATE
     Indication: Alopecia areata
     Dosage: 5 MG, 2X/DAY
     Route: 048
  2. XELJANZ [Suspect]
     Active Substance: TOFACITINIB CITRATE
     Indication: Actinic keratosis
     Dosage: 10 MG
     Route: 048

REACTIONS (5)
  - Seborrhoeic keratosis [Unknown]
  - Off label use [Unknown]
  - Product dispensing error [Unknown]
  - Drug effective for unapproved indication [Unknown]
  - Intercepted product prescribing error [Unknown]
